FAERS Safety Report 10063253 (Version 2)
Quarter: 2014Q2

REPORT INFORMATION
  Report Type: Spontaneous
  Country: PL (occurrence: PL)
  Receive Date: 20140407
  Receipt Date: 20140411
  Transmission Date: 20141212
  Serious: Yes (Hospitalization)
  Sender: FDA-Public Use
  Company Number: PL-TEVA-471466ISR

PATIENT
  Sex: Female

DRUGS (4)
  1. CICLOSPORIN [Suspect]
     Indication: PROPHYLAXIS AGAINST GRAFT VERSUS HOST DISEASE
     Route: 065
  2. ASPARAGINASE [Suspect]
     Indication: ACUTE LYMPHOCYTIC LEUKAEMIA
     Route: 065
  3. METHYLPREDNISOLONE [Suspect]
     Indication: ACUTE GRAFT VERSUS HOST DISEASE IN SKIN
     Dosage: 2-4 MG/KG/DAY
     Route: 065
  4. METHYLPREDNISOLONE [Suspect]
     Indication: PULMONARY ALVEOLAR HAEMORRHAGE
     Route: 065

REACTIONS (9)
  - Diabetes mellitus [Recovering/Resolving]
  - Pancreatitis acute [Recovering/Resolving]
  - Acute respiratory failure [Unknown]
  - Acute graft versus host disease in skin [Unknown]
  - Engraftment syndrome [Unknown]
  - Pulmonary alveolar haemorrhage [Unknown]
  - Infection [Unknown]
  - Mucosal inflammation [Unknown]
  - Mumps [Unknown]
